FAERS Safety Report 5588358-1 (Version None)
Quarter: 2008Q1

REPORT INFORMATION
  Report Type: 
  Country: None (occurrence: None)
  Receive Date: 20080111
  Receipt Date: 20071009
  Transmission Date: 20080703
  Serious: No
  Sender: FDA-Public Use
  Company Number: A0686678A

PATIENT
  Age: 59 Year
  Sex: Female

DRUGS (8)
  1. TYKERB [Suspect]
     Indication: BREAST CANCER
     Dosage: 750MG PER DAY
     Route: 048
     Dates: start: 20070409
  2. CELEXA [Concomitant]
  3. SYNTHROID [Concomitant]
  4. CYTOMEL [Concomitant]
  5. XANAX [Concomitant]
  6. AMBIEN [Concomitant]
  7. BENADRYL [Concomitant]
  8. CLARITIN [Concomitant]

REACTIONS (6)
  - ABNORMAL DREAMS [None]
  - DIARRHOEA [None]
  - DIZZINESS [None]
  - EPISTAXIS [None]
  - NAUSEA [None]
  - RECTAL DISCHARGE [None]
